FAERS Safety Report 4574780-9 (Version None)
Quarter: 2005Q1

REPORT INFORMATION
  Report Type: 
  Country: None (occurrence: None)
  Receive Date: 20050208
  Receipt Date: 20040621
  Transmission Date: 20050727
  Serious: No
  Sender: FDA-Public Use
  Company Number: US-GLAXOSMITHKLINE-A0515400A

PATIENT
  Sex: Female

DRUGS (5)
  1. PAXIL CR [Suspect]
     Indication: DEPRESSION
     Dosage: 50MG PER DAY
     Route: 048
  2. PAXIL [Suspect]
     Indication: DEPRESSION
     Route: 048
  3. SEROQUEL [Concomitant]
  4. CLONOPIN [Concomitant]
  5. LEVOXYL [Concomitant]
     Dates: start: 20010101

REACTIONS (3)
  - AMENORRHOEA [None]
  - HOT FLUSH [None]
  - UTERINE LEIOMYOMA [None]
